FAERS Safety Report 8438637 (Version 2)
Quarter: 2012Q4

REPORT INFORMATION
  Report Type: 
  Country: US (occurrence: US)
  Receive Date: 20120302
  Receipt Date: 20120912
  Transmission Date: 20130627
  Serious: Yes (Other)
  Sender: FDA-Public Use
  Company Number: US-AMGEN-USASP2011063372

PATIENT
  Age: 89 Year
  Sex: Male
  Weight: 72.27 kg

DRUGS (5)
  1. NPLATE [Suspect]
     Indication: IDIOPATHIC THROMBOCYTOPENIC PURPURA
     Dosage: UNK UNK, qwk
     Dates: start: 20110615, end: 20111215
  2. PRILOSEC [Concomitant]
  3. MULTIVITAMIN [Concomitant]
  4. LUTEIN [Concomitant]
  5. FLU [Concomitant]
     Dosage: UNK
     Dates: start: 201111

REACTIONS (16)
  - Platelet count decreased [Not Recovered/Not Resolved]
  - Haemoglobin decreased [Recovering/Resolving]
  - Dementia [Not Recovered/Not Resolved]
  - Dysgeusia [Not Recovered/Not Resolved]
  - Mood altered [Not Recovered/Not Resolved]
  - Asthenia [Not Recovered/Not Resolved]
  - Muscular weakness [Not Recovered/Not Resolved]
  - Fatigue [Not Recovered/Not Resolved]
  - Weight decreased [Not Recovered/Not Resolved]
  - Renal impairment [Unknown]
  - Vaccination complication [Unknown]
  - Visual acuity reduced [Not Recovered/Not Resolved]
  - Urticaria [Unknown]
  - Rash [Unknown]
  - Pruritus [Unknown]
  - Quality of life decreased [Unknown]
